FAERS Safety Report 5124564-8 (Version None)
Quarter: 2006Q3

REPORT INFORMATION
  Report Type: 
  Country: None (occurrence: None)
  Receive Date: 20060821
  Receipt Date: 20060426
  Transmission Date: 20061208
  Serious: No
  Sender: FDA-Public Use
  Company Number: TPA2006A00701

PATIENT
  Age: 40 Year
  Sex: Male
  Weight: 147.419 kg

DRUGS (10)
  1. ROZEREM [Suspect]
     Indication: INSOMNIA
     Dosage: SEE IMAGE
     Route: 048
     Dates: start: 20060322, end: 20060323
  2. ROZEREM [Suspect]
     Indication: INSOMNIA
     Dosage: SEE IMAGE
     Route: 048
     Dates: start: 20050329, end: 20060331
  3. ROZEREM [Suspect]
     Indication: INSOMNIA
     Dosage: SEE IMAGE
     Route: 048
     Dates: start: 20060401
  4. AMBIEN [Suspect]
     Indication: SLEEP DISORDER THERAPY
     Dosage: 10 MG, QHS, PER ORAL
     Route: 048
     Dates: start: 20060329, end: 20060331
  5. XANAX [Suspect]
     Indication: SLEEP DISORDER THERAPY
     Dosage: 0.5 MG, QHS AS REQUIRED, PER ORAL
     Route: 048
     Dates: start: 20060322, end: 20060405
  6. SERENITE (ALL OTHER THERAPEUTIC PRODUCTS) [Suspect]
     Indication: SLEEP DISORDER THERAPY
     Dosage: PER ORAL
     Route: 048
     Dates: start: 20060322, end: 20060329
  7. REGLAN(METOCLOPRAMIDE HYDROCHLRIDE) [Concomitant]
  8. NEXIUM [Concomitant]
  9. ERYTHROMYCIN [Concomitant]
  10. CEFTIN [Concomitant]

REACTIONS (6)
  - ABNORMAL SENSATION IN EYE [None]
  - DRUG INEFFECTIVE [None]
  - EAR PAIN [None]
  - HEADACHE [None]
  - INITIAL INSOMNIA [None]
  - UPPER RESPIRATORY TRACT INFECTION [None]
